FAERS Safety Report 5332770-2 (Version None)
Quarter: 2007Q2

REPORT INFORMATION
  Report Type: 
  Country: None (occurrence: None)
  Receive Date: 20070518
  Receipt Date: 20070510
  Transmission Date: 20071010
  Serious: Yes (Other)
  Sender: FDA-Public Use
  Company Number: 2007SP009298

PATIENT
  Age: 16 Year
  Sex: Male

DRUGS (1)
  1. NASONEX [Suspect]
     Indication: HOUSE DUST ALLERGY
     Dosage: 2 DF; QD
     Dates: start: 20060901, end: 20061201

REACTIONS (4)
  - DIZZINESS [None]
  - NAUSEA [None]
  - PAPILLOEDEMA [None]
  - VOMITING [None]
